FAERS Safety Report 7922250 (Version 4)
Quarter: 2016Q4

REPORT INFORMATION
  Report Type: Spontaneous
  Country: US (occurrence: US)
  Receive Date: 20110429
  Receipt Date: 20161105
  Transmission Date: 20170207
  Serious: No
  Sender: FDA-Public Use
  Company Number: US-ASTRAZENECA-2011SE10211

PATIENT
  Age: 44 Year
  Sex: Male

DRUGS (2)
  1. TUMS [Concomitant]
     Active Substance: CALCIUM CARBONATE
  2. NEXIUM [Suspect]
     Active Substance: ESOMEPRAZOLE MAGNESIUM
     Indication: GASTROOESOPHAGEAL REFLUX DISEASE
     Dosage: 40.0MG UNKNOWN
     Route: 048

REACTIONS (10)
  - Dyspepsia [Unknown]
  - Dyspnoea [Unknown]
  - Feeding disorder [Unknown]
  - Malaise [Unknown]
  - Sleep disorder due to general medical condition, insomnia type [Unknown]
  - Gastrooesophageal reflux disease [Recovered/Resolved]
  - Nocturnal dyspnoea [Unknown]
  - Insomnia [Unknown]
  - Drug dose omission [Unknown]
  - Abdominal discomfort [Unknown]
